FAERS Safety Report 5071616-7 (Version None)
Quarter: 2006Q3

REPORT INFORMATION
  Report Type: 
  Country: None (occurrence: None)
  Receive Date: 20060804
  Receipt Date: 20060728
  Transmission Date: 20061208
  Serious: Yes (Death)
  Sender: FDA-Public Use
  Company Number: JP-MERCK-0608USA00595

PATIENT
  Age: 76 Year

DRUGS (7)
  1. FOSAMAX [Suspect]
     Indication: OSTEOPOROSIS
     Route: 048
     Dates: start: 20030901, end: 20050901
  2. ARAVA [Suspect]
     Indication: RHEUMATOID ARTHRITIS
     Route: 048
     Dates: start: 20030901, end: 20050901
  3. GASTER D [Concomitant]
     Route: 048
     Dates: start: 20030901, end: 20050901
  4. URSO [Concomitant]
     Route: 048
     Dates: start: 20030901, end: 20050901
  5. PROMAC [Concomitant]
     Route: 048
     Dates: start: 20030901, end: 20050901
  6. PREDNISOLONE [Concomitant]
     Route: 048
     Dates: start: 20030901, end: 20050901
  7. [THERAPY UNSPECIFIED] [Concomitant]
     Route: 065
     Dates: start: 20030901, end: 20050901

REACTIONS (1)
  - PANCREATIC CARCINOMA [None]
